FAERS Safety Report 20705652 (Version 3)
Quarter: 2022Q2

REPORT INFORMATION
  Report Type: Spontaneous
  Country: US (occurrence: US)
  Receive Date: 20220413
  Receipt Date: 20220506
  Transmission Date: 20220721
  Serious: No
  Sender: FDA-Public Use
  Company Number: US-PFIZER INC-202200435964

PATIENT
  Age: 45 Year
  Sex: Male

DRUGS (9)
  1. CIBINQO [Suspect]
     Active Substance: ABROCITINIB
     Indication: Dermatitis atopic
     Dosage: 100 MG, 1X/DAY
     Route: 048
  2. CIBINQO [Suspect]
     Active Substance: ABROCITINIB
     Indication: Eczema
  3. DUPIXENT [Concomitant]
     Active Substance: DUPILUMAB
     Dosage: UNK (300 MG/2 ML SUBCUTANEOUS PEN INJECTOR)
     Route: 058
  4. FLUOCINOLONE [Concomitant]
     Active Substance: FLUOCINOLONE
     Dosage: UNK (0.01 % TOPICAL BODY OIL)
     Route: 061
  5. PREDNISONE [Concomitant]
     Active Substance: PREDNISONE
     Dosage: UNK
  6. TRIAMCINOLONE ACETONIDE [Concomitant]
     Active Substance: TRIAMCINOLONE ACETONIDE
     Dosage: UNK
     Route: 061
  7. TRIAMCINOLONE ACETONIDE [Concomitant]
     Active Substance: TRIAMCINOLONE ACETONIDE
     Dosage: UNK
     Route: 061
  8. RINVOQ [Concomitant]
     Active Substance: UPADACITINIB
     Dosage: UNK (EXTENDED RELEASE)
  9. KENALOG [Concomitant]
     Active Substance: TRIAMCINOLONE ACETONIDE
     Dosage: 40 MG
     Route: 030

REACTIONS (5)
  - Drug ineffective [Unknown]
  - Glomerular filtration rate decreased [Unknown]
  - Dermatitis atopic [Unknown]
  - Pain [Unknown]
  - Liver function test increased [Unknown]

NARRATIVE: CASE EVENT DATE: 20220401
